FAERS Safety Report 5719714-6 (Version None)
Quarter: 2008Q2

REPORT INFORMATION
  Report Type: 
  Country: None (occurrence: None)
  Receive Date: 20080428
  Receipt Date: 20070410
  Transmission Date: 20081010
  Serious: Yes (Hospitalization)
  Sender: FDA-Public Use
  Company Number: A0647044A

PATIENT
  Age: 48 Year
  Sex: Female

DRUGS (3)
  1. ZOFRAN [Suspect]
  2. GEMZAR [Suspect]
     Dosage: 1938MG UNKNOWN
     Dates: start: 20070323
  3. ATIVAN [Concomitant]

REACTIONS (4)
  - DRUG INEFFECTIVE [None]
  - NAUSEA [None]
  - RASH [None]
  - VOMITING [None]
